FAERS Safety Report 19857097 (Version 1)
Quarter: 2021Q3

REPORT INFORMATION
  Report Type: Spontaneous
  Country: JP (occurrence: JP)
  Receive Date: 20210920
  Receipt Date: 20210920
  Transmission Date: 20211014
  Serious: Yes (Death, Other)
  Sender: FDA-Public Use
  Company Number: JP-ROCHE-2911634

PATIENT
  Age: 70 Year
  Sex: Male
  Weight: 45.1 kg

DRUGS (7)
  1. APREPITANT. [Concomitant]
     Active Substance: APREPITANT
     Dosage: UNK, QD
     Route: 048
     Dates: start: 20210616, end: 20210617
  2. DEXART [Concomitant]
     Active Substance: DEXAMETHASONE SODIUM PHOSPHATE
     Dosage: UNK UNK, QD
     Route: 065
     Dates: start: 20210615, end: 20210615
  3. TECENTRIQ [Suspect]
     Active Substance: ATEZOLIZUMAB
     Indication: LUNG ADENOCARCINOMA
     Route: 041
     Dates: start: 20210615, end: 20210615
  4. ABRAXANE [Suspect]
     Active Substance: PACLITAXEL
     Indication: NON-SMALL CELL LUNG CANCER
     Route: 041
     Dates: start: 20210615, end: 20210615
  5. ALOXI [Concomitant]
     Active Substance: PALONOSETRON HYDROCHLORIDE
     Dosage: UNK, QD
     Route: 065
     Dates: start: 20210615, end: 20210615
  6. CARBOPLATIN. [Suspect]
     Active Substance: CARBOPLATIN
     Indication: LUNG ADENOCARCINOMA
     Route: 041
     Dates: start: 20210616, end: 20210616
  7. APREPITANT. [Concomitant]
     Active Substance: APREPITANT
     Dosage: UNK, QD
     Route: 048
     Dates: start: 20210615, end: 20210615

REACTIONS (3)
  - Adrenal disorder [Unknown]
  - Diffuse alveolar damage [Fatal]
  - Hyponatraemia [Unknown]

NARRATIVE: CASE EVENT DATE: 20210623
